FAERS Safety Report 9935231 (Version 2)
Quarter: 2014Q1

REPORT INFORMATION
  Report Type: Spontaneous
  Country: CA (occurrence: CA)
  Receive Date: 20140228
  Receipt Date: 20140324
  Transmission Date: 20141002
  Serious: Yes (Hospitalization, Other)
  Sender: FDA-Public Use
  Company Number: CA-009507513-1402CAN012343

PATIENT
  Age: 57 Year
  Sex: Female

DRUGS (1)
  1. SINGULAIR [Suspect]
     Indication: ASTHMA
     Dosage: 10 MG DAILY DOSE
     Route: 048
     Dates: start: 20130930

REACTIONS (6)
  - Femur fracture [Unknown]
  - Internal fixation of fracture [Unknown]
  - Fall [Unknown]
  - Pneumonia [Unknown]
  - Malaise [Unknown]
  - Back pain [Unknown]
